FAERS Safety Report 8831142 (Version 1)
Quarter: 2012Q4

REPORT INFORMATION
  Report Type: Report from Study
  Country: US (occurrence: US)
  Receive Date: 20121008
  Receipt Date: 20121008
  Transmission Date: 20130627
  Serious: Yes (Death)
  Sender: FDA-Public Use
  Company Number: US-ASTELLAS-2011US007392

PATIENT
  Age: 76 None
  Sex: Male

DRUGS (5)
  1. ERLOTINIB TABLET [Suspect]
     Indication: LUNG CARCINOMA CELL TYPE UNSPECIFIED STAGE 0
     Dosage: 150 mg, Unknown/D
     Route: 048
     Dates: start: 20110727
  2. ERLOTINIB TABLET [Suspect]
     Dosage: 150 mg, Unknown/D
     Route: 048
     Dates: start: 20110811
  3. ERLOTINIB TABLET [Suspect]
     Dosage: 150 mg, UID/QD
     Route: 048
     Dates: start: 20120227
  4. TUMS [Concomitant]
     Indication: PRODUCT USED FOR UNKNOWN INDICATION
     Dosage: UNK
     Route: 065
  5. OTHER MEDICATIONS [Concomitant]
     Indication: PRODUCT USED FOR UNKNOWN INDICATION
     Dosage: UNK
     Route: 065

REACTIONS (5)
  - Death [Fatal]
  - Acne [Unknown]
  - Weight decreased [Unknown]
  - Decreased appetite [Unknown]
  - Dyspepsia [Unknown]
